FAERS Safety Report 10757122 (Version 1)
Quarter: 2015Q1

REPORT INFORMATION
  Report Type: Spontaneous
  Country: BR (occurrence: BR)
  Receive Date: 20150203
  Receipt Date: 20150203
  Transmission Date: 20150721
  Serious: Yes (Death, Other)
  Sender: FDA-Public Use
  Company Number: BR-PFIZER INC-2015038318

PATIENT
  Age: 75 Year
  Sex: Female
  Weight: 26 kg

DRUGS (1)
  1. XALATAN [Suspect]
     Active Substance: LATANOPROST
     Indication: GLAUCOMA
     Dosage: UNSPECIFIED DOSE, 1X/DAY
     Route: 047
     Dates: end: 20150124

REACTIONS (3)
  - Weight decreased [Unknown]
  - Respiratory failure [Fatal]
  - Secondary immunodeficiency [Unknown]
